FAERS Safety Report 9807443 (Version 1)
Quarter: 2014Q1

REPORT INFORMATION
  Report Type: Spontaneous
  Country: US (occurrence: US)
  Receive Date: 20140110
  Receipt Date: 20140110
  Transmission Date: 20141002
  Serious: No
  Sender: FDA-Public Use
  Company Number: US-PFIZER INC-2014006906

PATIENT
  Age: 72 Year
  Sex: Female
  Weight: 86.17 kg

DRUGS (3)
  1. ADVIL [Suspect]
     Indication: ARTHRITIS
     Dosage: UNK
     Route: 048
  2. ALLEGRA [Concomitant]
     Indication: HYPERSENSITIVITY
     Dosage: 90 MG, DAILY
  3. ADVIL [Concomitant]
     Indication: ARTHRITIS
     Dosage: 200 MG, DAILY
     Route: 048

REACTIONS (2)
  - Dyspepsia [Recovered/Resolved]
  - Drug ineffective [Unknown]
